FAERS Safety Report 15411239 (Version 3)
Quarter: 2019Q2

REPORT INFORMATION
  Report Type: Spontaneous
  Country: US (occurrence: US)
  Receive Date: 20180921
  Receipt Date: 20190604
  Transmission Date: 20190711
  Serious: Yes (Other)
  Sender: FDA-Public Use
  Company Number: US-PFIZER INC-2018375813

PATIENT
  Age: 78 Year
  Sex: Male

DRUGS (4)
  1. DOXAZOSIN MESILATE [Suspect]
     Active Substance: DOXAZOSIN MESYLATE
     Indication: BLOOD PRESSURE ABNORMAL
     Dosage: 1 TABLET, (1 TABLET INSTEAD OF 1 1/2 TABLETS)
  2. DOXAZOSIN MESILATE [Suspect]
     Active Substance: DOXAZOSIN MESYLATE
     Indication: URINE FLOW DECREASED
     Dosage: 8 MG, UNK
  3. DOXAZOSIN MESILATE [Suspect]
     Active Substance: DOXAZOSIN MESYLATE
     Indication: SWELLING
     Dosage: 4 MG, UNK
  4. DOXAZOSIN MESILATE [Suspect]
     Active Substance: DOXAZOSIN MESYLATE
     Indication: PROSTATOMEGALY
     Dosage: 6 MG, 1X/DAY (1 + 1/2)

REACTIONS (5)
  - Intentional product misuse [Recovered/Resolved]
  - Renal cell carcinoma [Unknown]
  - Drug ineffective [Recovered/Resolved]
  - Heart rate decreased [Unknown]
  - Blood test abnormal [Unknown]
